FAERS Safety Report 6199780-7 (Version None)
Quarter: 2009Q2

REPORT INFORMATION
  Report Type: 
  Country: None (occurrence: None)
  Receive Date: 20090522
  Receipt Date: 20090514
  Transmission Date: 20091009
  Serious: Yes (Death, Hospitalization, Other)
  Sender: FDA-Public Use
  Company Number: ES-ELI_LILLY_AND_COMPANY-ES200905002814

PATIENT
  Age: 76 Year
  Sex: Female

DRUGS (7)
  1. CYMBALTA [Suspect]
     Indication: DEPRESSION
     Dosage: 30 MG, DAILY (1/D)
     Route: 048
     Dates: start: 20090228, end: 20090305
  2. PANTOPRAZOL [Concomitant]
     Indication: PROPHYLAXIS
     Dosage: 40 MG, UNKNOWN
     Route: 042
     Dates: start: 20090226, end: 20090331
  3. PARACETAMOL [Concomitant]
     Indication: PAIN
     Dosage: 3 G, UNKNOWN
     Route: 042
     Dates: start: 20090226, end: 20090331
  4. ANAFRANIL [Concomitant]
     Indication: DEPRESSION
     Dosage: 100 MG, UNKNOWN
     Route: 042
     Dates: start: 20090305
  5. INYESPRIN                          /00002703/ [Concomitant]
     Indication: PAIN
     Dosage: 450 MG, UNKNOWN
     Route: 042
     Dates: start: 20090228, end: 20090320
  6. PRIMPERAN /00041901/ [Concomitant]
     Indication: VOMITING
     Dosage: UNK, UNKNOWN
     Route: 065
     Dates: start: 20090226, end: 20090309
  7. TAZOCEL [Concomitant]
     Indication: ABDOMINAL INFECTION
     Dosage: 12 G, UNKNOWN
     Route: 042
     Dates: start: 20090226, end: 20090313

REACTIONS (5)
  - GENERAL PHYSICAL HEALTH DETERIORATION [None]
  - HEPATIC LESION [None]
  - PANCYTOPENIA [None]
  - PYREXIA [None]
  - VOMITING [None]
